FAERS Safety Report 16733529 (Version 1)
Quarter: 2019Q3

REPORT INFORMATION
  Report Type: Spontaneous
  Country: PT (occurrence: PT)
  Receive Date: 20190823
  Receipt Date: 20190823
  Transmission Date: 20191005
  Serious: Yes (Death, Other)
  Sender: FDA-Public Use
  Company Number: PT-SA-2019SA136497

PATIENT
  Age: 45 Year
  Sex: Female

DRUGS (12)
  1. DOCETAXEL. [Suspect]
     Active Substance: DOCETAXEL
     Indication: BREAST CANCER
     Dosage: UNK
     Route: 065
  2. DOCETAXEL. [Suspect]
     Active Substance: DOCETAXEL
     Indication: CHEMOTHERAPY
  3. CARBOPLATIN. [Suspect]
     Active Substance: CARBOPLATIN
     Indication: INVASIVE DUCTAL BREAST CARCINOMA
     Dosage: UNK
     Route: 065
  4. PACLITAXEL. [Suspect]
     Active Substance: PACLITAXEL
     Indication: HUMAN EPIDERMAL GROWTH FACTOR RECEPTOR NEGATIVE
  5. FULVESTRANT. [Suspect]
     Active Substance: FULVESTRANT
     Indication: BREAST CANCER METASTATIC
     Route: 030
  6. PALBOCICLIB [Suspect]
     Active Substance: PALBOCICLIB
     Indication: HORMONE THERAPY
  7. PALBOCICLIB [Suspect]
     Active Substance: PALBOCICLIB
     Indication: CHEMOTHERAPY
  8. EVEROLIMUS. [Suspect]
     Active Substance: EVEROLIMUS
     Indication: METASTASES TO LIVER
     Route: 065
  9. PALBOCICLIB [Suspect]
     Active Substance: PALBOCICLIB
     Indication: HUMAN EPIDERMAL GROWTH FACTOR RECEPTOR NEGATIVE
  10. PALBOCICLIB [Suspect]
     Active Substance: PALBOCICLIB
     Indication: BREAST CANCER METASTATIC
     Dosage: 100 MG DAILY FOR 21 DAYS
     Route: 048
  11. EXEMESTANE. [Suspect]
     Active Substance: EXEMESTANE
     Indication: METASTASES TO LIVER
     Route: 065
  12. LETROZOLE. [Suspect]
     Active Substance: LETROZOLE
     Indication: HORMONE THERAPY

REACTIONS (12)
  - Malignant neoplasm progression [Unknown]
  - Drug intolerance [Unknown]
  - Invasive ductal breast carcinoma [Unknown]
  - Metastases to liver [Unknown]
  - Haematotoxicity [Recovered/Resolved]
  - Hepatic failure [Fatal]
  - Thrombocytopenia [Recovering/Resolving]
  - Metastasis [Unknown]
  - Neutropenia [Unknown]
  - Off label use [Unknown]
  - Therapeutic response decreased [Unknown]
  - Cancer pain [Unknown]

NARRATIVE: CASE EVENT DATE: 201612
